FAERS Safety Report 9325801 (Version 1)
Quarter: 2013Q2

REPORT INFORMATION
  Report Type: Spontaneous
  Country: US (occurrence: None)
  Receive Date: 20130603
  Receipt Date: 20130603
  Transmission Date: 20140414
  Serious: No
  Sender: FDA-Public Use
  Company Number: None

PATIENT
  Sex: Male
  Weight: 122.8 kg

DRUGS (3)
  1. CLONAZEPAM [Suspect]
     Indication: BALTIC MYOCLONIC EPILEPSY
     Dosage: 1 1/2
     Route: 048
     Dates: start: 20100416
  2. CLONAZEPAM [Suspect]
     Indication: ANXIETY
     Dosage: 1 1/2
     Route: 048
     Dates: start: 20100416
  3. CLONAZEPAM [Suspect]
     Indication: MYOCLONIC EPILEPSY
     Dosage: 1 1/2
     Route: 048
     Dates: start: 20100416

REACTIONS (3)
  - Convulsion [None]
  - Anxiety [None]
  - Product substitution issue [None]
